FAERS Safety Report 8561227-0 (Version None)
Quarter: 2012Q3

REPORT INFORMATION
  Report Type: 
  Country: None (occurrence: None)
  Receive Date: 20120802
  Receipt Date: 20120724
  Transmission Date: 20120928
  Serious: Yes (Hospitalization)
  Sender: FDA-Public Use
  Company Number: US-ASTRAZENECA-2012SE52417

PATIENT
  Age: 48 Year
  Sex: Female
  Weight: 59.9 kg

DRUGS (7)
  1. SEROQUEL XR [Suspect]
     Indication: BIPOLAR I DISORDER
     Route: 048
     Dates: end: 20120610
  2. SEROQUEL XR [Suspect]
     Route: 048
     Dates: start: 20120614
  3. SEROQUEL XR [Suspect]
     Indication: SCHIZOPHRENIA
     Route: 048
     Dates: end: 20120610
  4. PROZAC [Concomitant]
  5. SEROQUEL XR [Suspect]
     Route: 048
     Dates: start: 20120614
  6. RESTEROL [Concomitant]
  7. MERATIN [Concomitant]

REACTIONS (5)
  - DRUG DOSE OMISSION [None]
  - MALAISE [None]
  - HALLUCINATION, AUDITORY [None]
  - HALLUCINATION, VISUAL [None]
  - INSOMNIA [None]
